FAERS Safety Report 9349499 (Version 1)
Quarter: 2013Q2

REPORT INFORMATION
  Report Type: Spontaneous
  Country: US (occurrence: US)
  Receive Date: 20130614
  Receipt Date: 20130614
  Transmission Date: 20140414
  Serious: Yes (Hospitalization)
  Sender: FDA-Public Use
  Company Number: US-GLAXOSMITHKLINE-A0837855A

PATIENT
  Age: 57 Year
  Sex: Female
  Weight: 81.8 kg

DRUGS (1)
  1. AVANDIA [Suspect]
     Indication: DIABETES MELLITUS
     Dosage: 4MG PER DAY
     Route: 048
     Dates: start: 200204

REACTIONS (5)
  - Cardiac failure [Unknown]
  - Blood pressure fluctuation [Unknown]
  - Cardiac pacemaker insertion [Unknown]
  - Sick sinus syndrome [Unknown]
  - Hallucination [Unknown]
